FAERS Safety Report 9034128 (Version 1)
Quarter: 2013Q1

REPORT INFORMATION
  Report Type: Spontaneous
  Country: IE (occurrence: IE)
  Receive Date: 20130128
  Receipt Date: 20130128
  Transmission Date: 20140127
  Serious: Yes (Hospitalization)
  Sender: FDA-Public Use
  Company Number: IE-AMGEN-IRLSP2012024417

PATIENT
  Age: 69 Year
  Sex: Female

DRUGS (10)
  1. NEULASTA [Suspect]
     Indication: BREAST CANCER
     Dosage: 6 MG, 3 TIMES/WK
     Route: 058
     Dates: start: 20120124, end: 20120509
  2. NEULASTA [Suspect]
  3. CARDURA XL [Concomitant]
  4. IBUPROFEN [Concomitant]
  5. STEMETIL [Concomitant]
  6. DEXAMETHASONE [Concomitant]
  7. VALOID [Concomitant]
  8. ANTINEOPLASTIC AGENTS [Concomitant]
  9. CIPROXIN [Concomitant]
  10. ANTIBIOTICS [Concomitant]

REACTIONS (2)
  - Pain [Unknown]
  - Body temperature increased [Unknown]
